FAERS Safety Report 14286440 (Version 4)
Quarter: 2018Q2

REPORT INFORMATION
  Report Type: Spontaneous
  Country: JP (occurrence: JP)
  Receive Date: 20171214
  Receipt Date: 20180405
  Transmission Date: 20180711
  Serious: Yes (Death, Hospitalization, Other)
  Sender: FDA-Public Use
  Company Number: JP-009507513-1710JPN001144J

PATIENT
  Age: 69 Year
  Sex: Female
  Weight: 52 kg

DRUGS (9)
  1. OLOPATADINE HYDROCHLORIDE. [Concomitant]
     Active Substance: OLOPATADINE HYDROCHLORIDE
     Dosage: 1 DF, BID
     Route: 048
     Dates: end: 20171203
  2. NAIXAN [Concomitant]
     Active Substance: NAPROXEN SODIUM
     Dosage: 1 DF, TID
     Route: 048
     Dates: end: 20171203
  3. MAGMITT [Concomitant]
     Active Substance: MAGNESIUM OXIDE
     Dosage: 1 DF, TID
     Route: 048
     Dates: end: 20171203
  4. MIYA-BM [Concomitant]
     Active Substance: CLOSTRIDIUM BUTYRICUM SPORES STRAIN M-55
     Dosage: 1 DF, TID
     Route: 048
     Dates: end: 20171203
  5. CYMBALTA [Concomitant]
     Active Substance: DULOXETINE HYDROCHLORIDE
     Dosage: 2 DF, QD
     Route: 048
     Dates: end: 20171203
  6. TAKECAB [Concomitant]
     Active Substance: VONOPRAZAN FUMURATE
     Dosage: 1 DF, QD
     Route: 048
     Dates: end: 20171203
  7. KEYTRUDA [Suspect]
     Active Substance: PEMBROLIZUMAB
     Indication: SQUAMOUS CELL CARCINOMA OF LUNG
     Dosage: 200 MG, Q3W
     Route: 041
     Dates: start: 20170926, end: 20170926
  8. LYRICA [Concomitant]
     Active Substance: PREGABALIN
     Dosage: 1 DF, QD
     Route: 048
     Dates: end: 20171203
  9. DENOTAS [Concomitant]
     Active Substance: CALCIUM CARBONATE\CHOLECALCIFEROL\MAGNESIUM CARBONATE
     Dosage: 2 DF, QD
     Route: 048
     Dates: end: 20171203

REACTIONS (5)
  - Hepatic function abnormal [Recovered/Resolved]
  - Malignant neoplasm progression [Fatal]
  - Infusion related reaction [Recovered/Resolved]
  - Lung disorder [Recovered/Resolved]
  - Superior vena cava syndrome [Fatal]

NARRATIVE: CASE EVENT DATE: 201709
